FAERS Safety Report 5718529-2 (Version None)
Quarter: 2008Q2

REPORT INFORMATION
  Report Type: 
  Country: None (occurrence: None)
  Receive Date: 20080425
  Receipt Date: 20080410
  Transmission Date: 20081010
  Serious: Yes (Death)
  Sender: FDA-Public Use
  Company Number: US-GENENTECH-259878

PATIENT
  Sex: Male

DRUGS (4)
  1. BEVACIZUMAB [Suspect]
     Indication: COLON CANCER
     Dosage: 5 MG/KG, Q2W
     Route: 042
     Dates: start: 20050509, end: 20051013
  2. FLUOROURACIL [Suspect]
     Indication: COLON CANCER
     Dosage: 400 MG/M2, Q2W
     Route: 042
     Dates: start: 20050509, end: 20051013
  3. OXALIPLATIN [Suspect]
     Indication: COLON CANCER
     Dosage: 85 MG/M2, Q2W
     Route: 042
     Dates: start: 20050509, end: 20051013
  4. LEUCOVORIN CALCIUM [Suspect]
     Indication: COLON CANCER
     Dosage: 400 MG/M2, Q2W
     Route: 042
     Dates: start: 20050509, end: 20051013

REACTIONS (10)
  - BACK PAIN [None]
  - CARDIO-RESPIRATORY ARREST [None]
  - COLD SWEAT [None]
  - FALL [None]
  - FATIGUE [None]
  - MYOCARDIAL ISCHAEMIA [None]
  - NECK PAIN [None]
  - NEUROPATHY PERIPHERAL [None]
  - PULMONARY EMBOLISM [None]
  - PULSE ABSENT [None]
